APPROVED DRUG PRODUCT: PREDNISOLONE SODIUM PHOSPHATE
Active Ingredient: PREDNISOLONE SODIUM PHOSPHATE
Strength: EQ 5MG BASE/5ML
Dosage Form/Route: SOLUTION;ORAL
Application: A076982 | Product #001
Applicant: NESHER PHARMACEUTICALS USA LLC
Approved: May 24, 2005 | RLD: No | RS: No | Type: DISCN